FAERS Safety Report 4806339-X (Version None)
Quarter: 2005Q4

REPORT INFORMATION
  Report Type: 
  Country: None (occurrence: None)
  Receive Date: 20051021
  Receipt Date: 20050830
  Transmission Date: 20060501
  Serious: Yes (Hospitalization)
  Sender: FDA-Public Use
  Company Number: JP-ROCHE-416334

PATIENT
  Age: 65 Year
  Sex: Female

DRUGS (2)
  1. ROCEPHIN [Suspect]
     Indication: URINARY TRACT INFECTION
     Dosage: DAILY DOSE REPORTED AS 1G X 1/2 DAYS.
     Route: 041
     Dates: start: 20050726, end: 20050728
  2. BRUFEN [Concomitant]
     Route: 048
     Dates: start: 20050725

REACTIONS (6)
  - DRUG ERUPTION [None]
  - HAEMODIALYSIS [None]
  - INFECTION [None]
  - LIVER DISORDER [None]
  - RENAL FAILURE ACUTE [None]
  - RENAL TUBULAR DISORDER [None]
